FAERS Safety Report 12156107 (Version 1)
Quarter: 2016Q1

REPORT INFORMATION
  Report Type: Spontaneous
  Country: US (occurrence: US)
  Receive Date: 20160307
  Receipt Date: 20160307
  Transmission Date: 20160526
  Serious: Yes (Other)
  Sender: FDA-Public Use
  Company Number: US-SA-2016SA041100

PATIENT
  Sex: Male

DRUGS (2)
  1. LANTUS SOLOSTAR [Suspect]
     Active Substance: INSULIN GLARGINE
     Indication: TYPE 2 DIABETES MELLITUS
     Dosage: DOSE:50 UNIT(S)
     Route: 065
     Dates: start: 2006
  2. SOLOSTAR [Concomitant]
     Active Substance: DEVICE
     Indication: TYPE 2 DIABETES MELLITUS
     Dates: start: 2006

REACTIONS (8)
  - Gastrooesophageal reflux disease [Unknown]
  - Cognitive disorder [Unknown]
  - Skin lesion [Recovering/Resolving]
  - Myocardial infarction [Unknown]
  - Cerebrovascular accident [Unknown]
  - Drug administration error [Unknown]
  - Chest pain [Unknown]
  - Blood glucose increased [Unknown]
